FAERS Safety Report 10759935 (Version 1)
Quarter: 2015Q1

REPORT INFORMATION
  Report Type: Spontaneous
  Country: US (occurrence: US)
  Receive Date: 20150203
  Receipt Date: 20150203
  Transmission Date: 20150721
  Serious: Yes (Death)
  Sender: FDA-Public Use
  Company Number: US-PERRIGO-15US000968

PATIENT
  Age: 26 Year
  Sex: Female

DRUGS (5)
  1. OXYCODONE [Suspect]
     Active Substance: OXYCODONE
     Indication: DRUG ABUSE
     Dosage: UNK
     Route: 048
  2. ESCITALOPRAM [Suspect]
     Active Substance: ESCITALOPRAM OXALATE
     Indication: DRUG ABUSE
     Dosage: UNK
     Route: 048
  3. LORAZEPAM CONCENTRATE RX 2 MG/ML 1J9 [Suspect]
     Active Substance: LORAZEPAM
     Indication: DRUG ABUSE
     Dosage: UNK
     Route: 048
  4. ETHANOL [Suspect]
     Active Substance: ALCOHOL
     Indication: ALCOHOL ABUSE
     Dosage: UNK
     Route: 048
  5. METHOCARBAMOL. [Suspect]
     Active Substance: METHOCARBAMOL
     Indication: DRUG ABUSE
     Dosage: UNK
     Route: 048

REACTIONS (1)
  - Death [Fatal]
